FAERS Safety Report 16977806 (Version 1)
Quarter: 2019Q4

REPORT INFORMATION
  Report Type: Report from Study
  Country: CA (occurrence: CA)
  Receive Date: 20191031
  Receipt Date: 20191031
  Transmission Date: 20200122
  Serious: Yes (Disabling)
  Sender: FDA-Public Use
  Company Number: CA-ROCHE-2364656

PATIENT
  Age: 50 Year
  Sex: Female
  Weight: 93 kg

DRUGS (11)
  1. OCREVUS [Suspect]
     Active Substance: OCRELIZUMAB
     Indication: MULTIPLE SCLEROSIS
  2. ALMAGEL [ALUMINIUM HYDROXIDE;MAGNESIUM HYDROXIDE] [Concomitant]
     Dosage: TAKE 10 TO 20 ML?EVERY 4 HOURS IF?REQUIRED (MAX:?[ILLEGIBLE] ML IN 24?HOURS) * EQUIVALENT:?MAALOX
     Route: 048
  3. LANSOPRAZOLE. [Concomitant]
     Active Substance: LANSOPRAZOLE
     Route: 065
  4. CITALOPRAM [Concomitant]
     Active Substance: CITALOPRAM HYDROBROMIDE
  5. RIZATRIPTAN. [Concomitant]
     Active Substance: RIZATRIPTAN
     Dosage: TAKE 1 TABLET IMMEDIATELY AT THE START OF THE MIGRAINE AND REPEAT AFTER 2 HOURS IF ONLY PARTIALLY AL
     Route: 065
  6. RITALIN [Concomitant]
     Active Substance: METHYLPHENIDATE HYDROCHLORIDE
  7. VALACYCLOVIR [Concomitant]
     Active Substance: VALACYCLOVIR HYDROCHLORIDE
     Route: 065
  8. VALACYCLOVIR [Concomitant]
     Active Substance: VALACYCLOVIR HYDROCHLORIDE
     Route: 065
  9. CELECOXIB. [Concomitant]
     Active Substance: CELECOXIB
     Route: 065
  10. MOMETASONE [Concomitant]
     Active Substance: MOMETASONE
     Dosage: TAKE 2 PUFFS 1 X PER?DAY IN EACH NOSTRIL
     Route: 065
  11. OCREVUS [Suspect]
     Active Substance: OCRELIZUMAB
     Indication: RELAPSING-REMITTING MULTIPLE SCLEROSIS
     Dosage: 300 MG AT DAY 0 AND 14, THEN 600 MG EVERY 6 MONTH?17/JUL/2019, RECEIVED SAME SUBSEQUENT DOSE
     Route: 042
     Dates: start: 20190716

REACTIONS (4)
  - Infusion related reaction [Recovered/Resolved]
  - Diarrhoea [Recovered/Resolved]
  - Vomiting [Unknown]
  - Infusion related reaction [Recovered/Resolved]

NARRATIVE: CASE EVENT DATE: 20190717
